FAERS Safety Report 8827652 (Version 1)
Quarter: 2012Q4

REPORT INFORMATION
  Report Type: 
  Country: JP (occurrence: JP)
  Receive Date: 20121005
  Receipt Date: 20121005
  Transmission Date: 20130627
  Serious: Yes (Death, Other)
  Sender: FDA-Public Use
  Company Number: JP-ASTRAZENECA-2012SE70961

PATIENT
  Age: 94 Year
  Sex: Female

DRUGS (7)
  1. SEROQUEL [Suspect]
     Indication: DELIRIUM
     Route: 048
  2. ITOROL [Concomitant]
  3. LANSOPRAZOLE [Concomitant]
  4. LASIX [Concomitant]
     Route: 048
  5. TICLOPIDINE HYDROCHLORIDE [Concomitant]
     Route: 048
  6. TIAPRIM [Concomitant]
     Route: 048
  7. MAGLAX [Concomitant]
     Route: 048

REACTIONS (3)
  - Cardiac failure acute [Fatal]
  - Blood glucose increased [Not Recovered/Not Resolved]
  - Off label use [Unknown]
